FAERS Safety Report 18135930 (Version 1)
Quarter: 2020Q3

REPORT INFORMATION
  Report Type: Report from Study
  Country: US (occurrence: US)
  Receive Date: 20200811
  Receipt Date: 20200811
  Transmission Date: 20201103
  Serious: Yes (Other)
  Sender: FDA-Public Use
  Company Number: US-TAKEDA-2018TUS024230

PATIENT
  Sex: Female

DRUGS (4)
  1. BRIGATINIB [Suspect]
     Active Substance: BRIGATINIB
     Indication: LUNG NEOPLASM MALIGNANT
     Dosage: 30 MILLIGRAM
     Route: 065
     Dates: start: 20180630
  2. BRIGATINIB [Suspect]
     Active Substance: BRIGATINIB
     Dosage: 120 MILLIGRAM, QD
     Route: 048
  3. BRIGATINIB [Suspect]
     Active Substance: BRIGATINIB
     Dosage: 30 MILLIGRAM, QID
     Route: 048
     Dates: start: 20180927
  4. BRIGATINIB [Suspect]
     Active Substance: BRIGATINIB
     Dosage: 30 MILLIGRAM, QID
     Route: 048
     Dates: start: 20200124, end: 20200806

REACTIONS (4)
  - Lung neoplasm malignant [Unknown]
  - Hepatic enzyme increased [Not Recovered/Not Resolved]
  - Diarrhoea [Unknown]
  - Therapy change [Unknown]
